FAERS Safety Report 9036773 (Version 1)
Quarter: 2013Q1

REPORT INFORMATION
  Report Type: Spontaneous
  Country: US (occurrence: None)
  Receive Date: 20130123
  Receipt Date: 20130123
  Transmission Date: 20140127
  Serious: No
  Sender: FDA-Public Use
  Company Number: None

PATIENT
  Age: 44 Year
  Sex: Male
  Weight: 72.58 kg

DRUGS (1)
  1. DACLIZUMAB [Suspect]
     Indication: MULTIPLE SCLEROSIS
     Dates: start: 20111008, end: 20121015

REACTIONS (1)
  - Rash [None]
